FAERS Safety Report 4594704-8 (Version None)
Quarter: 2005Q1

REPORT INFORMATION
  Report Type: 
  Country: None (occurrence: None)
  Receive Date: 20050301
  Receipt Date: 20050112
  Transmission Date: 20050727
  Serious: No
  Sender: FDA-Public Use
  Company Number: US-BRISTOL-MYERS SQUIBB COMPANY-12824397

PATIENT
  Age: 58 Year
  Sex: Female

DRUGS (2)
  1. ERBITUX [Suspect]
     Dates: start: 20050111
  2. IBUPROFEN [Concomitant]

REACTIONS (5)
  - ACCIDENTAL EXPOSURE [None]
  - DIZZINESS [None]
  - FEELING ABNORMAL [None]
  - NASAL DISCOMFORT [None]
  - THROAT IRRITATION [None]
